FAERS Safety Report 20435100 (Version 1)
Quarter: 2022Q1

REPORT INFORMATION
  Report Type: Spontaneous
  Country: DE (occurrence: DE)
  Receive Date: 20220206
  Receipt Date: 20220206
  Transmission Date: 20220423
  Serious: Yes (Other)
  Sender: FDA-Public Use
  Company Number: DE-BFARM-22000491

PATIENT
  Age: 40 Year

DRUGS (3)
  1. CLOPIDOGREL BISULFATE [Interacting]
     Active Substance: CLOPIDOGREL BISULFATE
     Dosage: UNK,
  2. ASPIRIN [Interacting]
     Active Substance: ASPIRIN
     Dosage: UNK,
  3. HYPERICUM PERFORATUM WHOLE [Interacting]
     Active Substance: HYPERICUM PERFORATUM WHOLE
     Dosage: UNK,

REACTIONS (5)
  - Carotid artery stenosis [Not Recovered/Not Resolved]
  - Drug interaction [Unknown]
  - Condition aggravated [Unknown]
  - Muscle twitching [Unknown]
  - Muscle twitching [Unknown]

NARRATIVE: CASE EVENT DATE: 20211201
